FAERS Safety Report 9361175 (Version 1)
Quarter: 2013Q2

REPORT INFORMATION
  Report Type: Spontaneous
  Country: US (occurrence: US)
  Receive Date: 20130621
  Receipt Date: 20130621
  Transmission Date: 20140414
  Serious: Yes (Hospitalization)
  Sender: FDA-Public Use
  Company Number: US-JNJFOC-20130608605

PATIENT
  Sex: Male

DRUGS (1)
  1. XARELTO [Suspect]
     Indication: PULMONARY EMBOLISM
     Dosage: FOR 3 WEEKS
     Route: 048

REACTIONS (2)
  - Pulmonary embolism [Recovering/Resolving]
  - Treatment noncompliance [Unknown]
